FAERS Safety Report 5476437-9 (Version None)
Quarter: 2007Q4

REPORT INFORMATION
  Report Type: 
  Country: None (occurrence: None)
  Receive Date: 20071003
  Receipt Date: 20070925
  Transmission Date: 20080405
  Serious: Yes (Death, Other)
  Sender: FDA-Public Use
  Company Number: US-PFIZER INC-2007081030

PATIENT
  Age: 33 Year
  Sex: Male

DRUGS (6)
  1. GEODON [Suspect]
     Indication: BIPOLAR DISORDER
  2. LEXAPRO [Suspect]
     Indication: DEPRESSION
     Route: 048
     Dates: start: 20061201, end: 20061201
  3. LEXAPRO [Suspect]
     Indication: GENERALISED ANXIETY DISORDER
  4. LYRICA [Concomitant]
  5. GLUCOPHAGE [Concomitant]
  6. ESGIC [Concomitant]

REACTIONS (2)
  - DEATH [None]
  - ELECTROCARDIOGRAM QT PROLONGED [None]
